FAERS Safety Report 20965028 (Version 4)
Quarter: 2022Q3

REPORT INFORMATION
  Report Type: Report from Study
  Country: US (occurrence: US)
  Receive Date: 20220616
  Receipt Date: 20220928
  Transmission Date: 20221027
  Serious: No
  Sender: FDA-Public Use
  Company Number: US-NOVARTISTESTPH-NVSC2022US137731

PATIENT
  Sex: Female

DRUGS (1)
  1. ENTRESTO [Suspect]
     Active Substance: SACUBITRIL\VALSARTAN
     Indication: Cardiac failure
     Dosage: UNK UNK, BID
     Route: 048
     Dates: start: 20220613

REACTIONS (4)
  - Abdominal distension [Unknown]
  - Fatigue [Recovering/Resolving]
  - Cough [Unknown]
  - Hypotension [Unknown]

NARRATIVE: CASE EVENT DATE: 20220614
